FAERS Safety Report 10327820 (Version 1)
Quarter: 2014Q3

REPORT INFORMATION
  Report Type: Spontaneous
  Country: FR (occurrence: FR)
  Receive Date: 20140721
  Receipt Date: 20140721
  Transmission Date: 20150326
  Serious: Yes (Hospitalization)
  Sender: FDA-Public Use
  Company Number: FR-SHIRE-FR201403816

PATIENT
  Age: 32 Year
  Sex: Male
  Weight: 96 kg

DRUGS (3)
  1. DANATROL [Concomitant]
     Active Substance: DANAZOL
     Indication: HEREDITARY ANGIOEDEMA
     Dosage: 200 MG, OTHER (4/WEEK)
     Route: 065
     Dates: start: 2002
  2. EXACYL [Concomitant]
     Active Substance: TRANEXAMIC ACID
     Indication: HEREDITARY ANGIOEDEMA
     Dosage: 500 MG, UNKNOWN (3/DAY)
     Route: 065
  3. FIRAZYR [Suspect]
     Active Substance: ICATIBANT ACETATE
     Indication: HEREDITARY ANGIOEDEMA
     Dosage: 30 MG, OTHER (ADMINISTRATION ONLY IN CASE OF ATTACK)
     Route: 058
     Dates: start: 20120707

REACTIONS (2)
  - Epididymal cyst [Recovered/Resolved]
  - Testicular pain [Recovered/Resolved]

NARRATIVE: CASE EVENT DATE: 20140122
